FAERS Safety Report 6294485-6 (Version None)
Quarter: 2009Q3

REPORT INFORMATION
  Report Type: 
  Country: None (occurrence: None)
  Receive Date: 20090803
  Receipt Date: 20090722
  Transmission Date: 20100115
  Serious: Yes (Other)
  Sender: FDA-Public Use
  Company Number: SE-AVENTIS-200917488GDDC

PATIENT
  Age: 80 Year
  Sex: Male
  Weight: 76.2 kg

DRUGS (7)
  1. AFLIBERCEPT [Suspect]
     Route: 042
     Dates: start: 20090630, end: 20090630
  2. DOCETAXEL [Suspect]
     Route: 042
     Dates: start: 20090630, end: 20090630
  3. PREDNISONE [Suspect]
     Dosage: DOSE: UNK
     Route: 048
     Dates: start: 20090219
  4. SUPREFACT [Concomitant]
     Dosage: DOSE: UNK
     Dates: start: 20080627
  5. OMEPRAZOL [Concomitant]
     Dosage: DOSE: UNK
     Dates: start: 20090205
  6. CIPROXIN                           /00697201/ [Concomitant]
     Dosage: DOSE: UNK
     Dates: start: 20090304
  7. NEULASTA [Concomitant]
     Dosage: DOSE: UNK
     Dates: start: 20090407

REACTIONS (1)
  - CORNEAL EROSION [None]
